FAERS Safety Report 6102555-8 (Version None)
Quarter: 2009Q1

REPORT INFORMATION
  Report Type: 
  Country: None (occurrence: None)
  Receive Date: 20090304
  Receipt Date: 20080819
  Transmission Date: 20090719
  Serious: No
  Sender: FDA-Public Use
  Company Number: A0743321A

PATIENT
  Age: 61 Year
  Sex: Female

DRUGS (2)
  1. REQUIP [Suspect]
     Indication: RESTLESS LEGS SYNDROME
     Dosage: 1MG PER DAY
     Route: 048
  2. MELATONIN [Concomitant]

REACTIONS (6)
  - CHEST PAIN [None]
  - DISABILITY [None]
  - FATIGUE [None]
  - INSOMNIA [None]
  - PRURITUS [None]
  - SOMNOLENCE [None]
